FAERS Safety Report 9083640 (Version 1)
Quarter: 2013Q1

REPORT INFORMATION
  Report Type: Report from Study
  Country: US (occurrence: US)
  Receive Date: 20130130
  Receipt Date: 20130130
  Transmission Date: 20140127
  Serious: No
  Sender: FDA-Public Use
  Company Number: US-ABBOTT-12P-163-0981770-00

PATIENT
  Age: 36 Year
  Sex: Male

DRUGS (2)
  1. HUMIRA [Suspect]
     Indication: CROHN^S DISEASE
     Dates: start: 20120807
  2. COLESTID [Concomitant]
     Indication: CROHN^S DISEASE
     Dosage: PILLS

REACTIONS (1)
  - Overdose [Recovered/Resolved with Sequelae]
